FAERS Safety Report 23609816 (Version 1)
Quarter: 2024Q1

REPORT INFORMATION
  Report Type: Report from Study
  Country: US (occurrence: US)
  Receive Date: 20240308
  Receipt Date: 20240308
  Transmission Date: 20240410
  Serious: Yes (Other)
  Sender: FDA-Public Use
  Company Number: US-AstraZeneca-CH-00577341A

PATIENT
  Sex: Male

DRUGS (1)
  1. SOLIRIS [Suspect]
     Active Substance: ECULIZUMAB
     Indication: Product used for unknown indication
     Dosage: UNK
     Route: 065

REACTIONS (8)
  - Syncope [Unknown]
  - Visual impairment [Unknown]
  - Dysphagia [Unknown]
  - Anxiety [Unknown]
  - Asthenia [Unknown]
  - Blood pressure decreased [Unknown]
  - Urinary tract disorder [Unknown]
  - Product dose omission issue [Unknown]
